FAERS Safety Report 21024919 (Version 1)
Quarter: 2022Q2

REPORT INFORMATION
  Report Type: Spontaneous
  Country: ES (occurrence: ES)
  Receive Date: 20220629
  Receipt Date: 20220629
  Transmission Date: 20220721
  Serious: Yes (Hospitalization)
  Sender: FDA-Public Use
  Company Number: None

PATIENT
  Age: 80 Year
  Sex: Male

DRUGS (2)
  1. QUETIAPINE [Suspect]
     Active Substance: QUETIAPINE
     Indication: Restlessness
     Dosage: UNIT DOSE: 25 MG, FREQUENCY TIME: 12 HOURS, DURATION: 17 DAYS, QUETIAPINA (1136A)
     Route: 048
     Dates: start: 20220318, end: 20220404
  2. ATORVASTATIN [Suspect]
     Active Substance: ATORVASTATIN
     Indication: Dyslipidaemia
     Dosage: UNIT DOSE: 20 MG, FREQUENCY TIME: 1 DAY, DURATION: 34 DAYS, ATORVASTATINA (7400A)
     Route: 048
     Dates: start: 20220301, end: 20220404

REACTIONS (1)
  - Hepatic cytolysis [Recovered/Resolved]

NARRATIVE: CASE EVENT DATE: 20220404
